FAERS Safety Report 21213425 (Version 8)
Quarter: 2022Q4

REPORT INFORMATION
  Report Type: Report from Study
  Country: ES (occurrence: ES)
  Receive Date: 20220815
  Receipt Date: 20221205
  Transmission Date: 20230113
  Serious: Yes (Hospitalization, Other)
  Sender: FDA-Public Use
  Company Number: ES-ABBVIE-22K-144-4259084-00

PATIENT
  Age: 76 Year
  Sex: Male
  Weight: 57.4 kg

DRUGS (3)
  1. CARBIDOPA\LEVODOPA [Suspect]
     Active Substance: CARBIDOPA\LEVODOPA
     Indication: Parkinson^s disease
     Dosage: FREQUENCY : 16 H A DAY
     Route: 050
     Dates: start: 20190117
  2. CARBIDOPA\LEVODOPA [Suspect]
     Active Substance: CARBIDOPA\LEVODOPA
     Dosage: MORNING DOSE 16 ML, CONTINUOUS DOSE 5.10 ML/H AND EXTRA DOSE 2.5 ML/16 H A DAY
     Route: 050
     Dates: start: 20220127, end: 20221121
  3. SINEMET [Concomitant]
     Active Substance: CARBIDOPA\LEVODOPA
     Indication: Parkinson^s disease
     Route: 048
     Dates: start: 20220125, end: 20220127

REACTIONS (18)
  - General physical health deterioration [Not Recovered/Not Resolved]
  - Device dislocation [Unknown]
  - Depressed mood [Unknown]
  - Impaired healing [Unknown]
  - Gait disturbance [Not Recovered/Not Resolved]
  - General physical health deterioration [Unknown]
  - Weight decreased [Not Recovered/Not Resolved]
  - Cognitive disorder [Not Recovered/Not Resolved]
  - Device breakage [Unknown]
  - Condition aggravated [Not Recovered/Not Resolved]
  - SARS-CoV-2 test positive [Recovered/Resolved]
  - Hypophagia [Unknown]
  - Incorrect route of product administration [Unknown]
  - Urinary incontinence [Not Recovered/Not Resolved]
  - Parkinson^s disease [Unknown]
  - Freezing phenomenon [Unknown]
  - Device dislocation [Unknown]
  - Insomnia [Unknown]

NARRATIVE: CASE EVENT DATE: 20210701
